FAERS Safety Report 5305154-0 (Version None)
Quarter: 2007Q2

REPORT INFORMATION
  Report Type: 
  Country: None (occurrence: None)
  Receive Date: 20070416
  Receipt Date: 20070404
  Transmission Date: 20071010
  Serious: Yes (Hospitalization)
  Sender: FDA-Public Use
  Company Number: 163-20785-07040419

PATIENT
  Age: 69 Year
  Sex: Male

DRUGS (10)
  1. THALOMID [Suspect]
     Indication: MULTIPLE MYELOMA
     Dosage: 50 MG, QD, ORAL
     Route: 048
     Dates: end: 20061116
  2. VELCADE [Suspect]
     Indication: MULTIPLE MYELOMA
     Dosage: 1.6 MG, DAYS 1, 4, 8, + 11 EVERY 28 DAYS, INTRAVENOUS
     Route: 042
     Dates: start: 20061106, end: 20061109
  3. VELCADE [Suspect]
     Indication: MULTIPLE MYELOMA
     Dosage: 1.6 MG, DAYS 1, 4, 8, + 11 EVERY 28 DAYS, INTRAVENOUS
     Route: 042
     Dates: start: 20061113, end: 20061116
  4. DEXAMETHASONE TAB [Suspect]
     Indication: MULTIPLE MYELOMA
     Dosage: 20 MG, DAYS 1-4 + 8-11 EVERY 28 DAYS, ORAL
     Route: 048
     Dates: start: 20061106, end: 20061109
  5. DEXAMETHASONE TAB [Suspect]
     Indication: MULTIPLE MYELOMA
     Dosage: 20 MG, DAYS 1-4 + 8-11 EVERY 28 DAYS, ORAL
     Route: 048
     Dates: start: 20061113, end: 20061116
  6. MULTIVITAMIN [Concomitant]
  7. FOLIC ACID [Concomitant]
  8. ACYCLOVIR [Concomitant]
  9. REMERON [Concomitant]
  10. PROZAC [Concomitant]

REACTIONS (22)
  - ASPIRATION PLEURAL CAVITY ABNORMAL [None]
  - ASTHENIA [None]
  - ATELECTASIS [None]
  - CHILLS [None]
  - COUGH [None]
  - CULTURE POSITIVE [None]
  - DEHYDRATION [None]
  - DYSPNOEA [None]
  - EJECTION FRACTION DECREASED [None]
  - EMPYEMA [None]
  - FALL [None]
  - FEBRILE NEUTROPENIA [None]
  - FUSOBACTERIUM INFECTION [None]
  - LUNG INFILTRATION [None]
  - MALAISE [None]
  - PLEURAL EFFUSION [None]
  - PNEUMONIA [None]
  - PYREXIA [None]
  - RHINORRHOEA [None]
  - SINUSITIS [None]
  - STAPHYLOCOCCAL BACTERAEMIA [None]
  - WEIGHT DECREASED [None]
